FAERS Safety Report 22205959 (Version 1)
Quarter: 2023Q2

REPORT INFORMATION
  Report Type: Report from Study
  Country: US (occurrence: US)
  Receive Date: 20230413
  Receipt Date: 20230413
  Transmission Date: 20230721
  Serious: Yes (Other)
  Sender: FDA-Public Use
  Company Number: US-ASTELLAS-2023US011562

PATIENT
  Age: 55 Year
  Sex: Male

DRUGS (3)
  1. GILTERITINIB [Suspect]
     Active Substance: GILTERITINIB
     Indication: Acute myeloid leukaemia
     Dosage: 120 MG, ONCE DAILY (3 TABLETS)
     Route: 048
     Dates: start: 20211126
  2. GILTERITINIB [Suspect]
     Active Substance: GILTERITINIB
     Dosage: 80 MG, ONCE DAILY (2 TABLETS) [DECREASED FOR ABOUT 3 WEEKS]
     Route: 048
  3. GILTERITINIB [Suspect]
     Active Substance: GILTERITINIB
     Dosage: 120 MG, ONCE DAILY (3 TABLETS)
     Route: 048

REACTIONS (2)
  - Hepatitis [Recovering/Resolving]
  - Off label use [Unknown]

NARRATIVE: CASE EVENT DATE: 20211126
